FAERS Safety Report 5153049-8 (Version None)
Quarter: 2006Q4

REPORT INFORMATION
  Report Type: 
  Country: None (occurrence: None)
  Receive Date: 20061117
  Receipt Date: 20061113
  Transmission Date: 20070319
  Serious: Yes (Death, Other)
  Sender: FDA-Public Use
  Company Number: PHBS2006JP17750

PATIENT
  Age: 73 Year
  Sex: Male
  Weight: 50 kg

DRUGS (13)
  1. ZOMETA [Suspect]
     Indication: LUNG NEOPLASM MALIGNANT
     Dosage: 3 MG, VIA DRIP INFUSION
     Dates: start: 20060628, end: 20060830
  2. BLOPRESS [Concomitant]
     Dosage: 8 MG/D
     Route: 048
     Dates: start: 20040601, end: 20060908
  3. GASTER D [Concomitant]
     Dosage: 20 MG/D
     Route: 048
     Dates: start: 20040601, end: 20060908
  4. GASTROM [Concomitant]
     Dosage: 2 G/D
     Route: 048
     Dates: start: 20040601, end: 20060908
  5. CALSED [Suspect]
     Dosage: 50 MG, VIA DRIP INFUSION
     Dates: start: 20060726, end: 20060830
  6. MAGMITT KENEI [Concomitant]
     Dosage: 750 MG/D
     Route: 048
     Dates: start: 20040601, end: 20060908
  7. PANTOSIN [Concomitant]
     Dosage: 360 MG/D
     Route: 048
     Dates: start: 20051222, end: 20060908
  8. NOVAMIN [Concomitant]
     Dosage: 15 MG/D
     Route: 048
     Dates: start: 20060108, end: 20060908
  9. CYANOCOBALAMIN [Concomitant]
     Dosage: 1500 UG/D
     Route: 048
     Dates: start: 20060215, end: 20060908
  10. PURSENNID [Concomitant]
     Dosage: 48 MG/D
     Route: 048
     Dates: start: 20040601, end: 20060908
  11. ALESION [Concomitant]
     Dosage: 20 MG/D
     Route: 048
     Dates: start: 20060215, end: 20060908
  12. GRAMALIL [Concomitant]
     Dosage: 50 MG/D
     Route: 048
     Dates: start: 20060426, end: 20060908
  13. LENDORMIN [Concomitant]
     Dosage: 0.25 MG/D
     Route: 048
     Dates: start: 20060514, end: 20060908

REACTIONS (12)
  - ACUTE RESPIRATORY DISTRESS SYNDROME [None]
  - BLOOD PH INCREASED [None]
  - C-REACTIVE PROTEIN INCREASED [None]
  - CHEST X-RAY ABNORMAL [None]
  - DYSPNOEA [None]
  - HYPOXIA [None]
  - INTERSTITIAL LUNG DISEASE [None]
  - PCO2 INCREASED [None]
  - PNEUMONIA [None]
  - PO2 INCREASED [None]
  - PYREXIA [None]
  - WHITE BLOOD CELL COUNT INCREASED [None]
